FAERS Safety Report 8498063-X (Version None)
Quarter: 2012Q3

REPORT INFORMATION
  Report Type: 
  Country: None (occurrence: None)
  Receive Date: 20120709
  Receipt Date: 20120618
  Transmission Date: 20120928
  Serious: No
  Sender: FDA-Public Use
  Company Number: US-AMGEN-USASP2012037717

PATIENT
  Age: 76 Year
  Sex: Female

DRUGS (1)
  1. ENBREL [Suspect]
     Indication: RHEUMATOID ARTHRITIS
     Dosage: UNK
     Dates: start: 20110101, end: 20110701

REACTIONS (6)
  - ASTHENIA [None]
  - CONSTIPATION [None]
  - GAIT DISTURBANCE [None]
  - MEMORY IMPAIRMENT [None]
  - ANAEMIA [None]
  - SKIN DISCOLOURATION [None]
